FAERS Safety Report 22089814 (Version 2)
Quarter: 2023Q2

REPORT INFORMATION
  Report Type: Report from Study
  Country: JP (occurrence: JP)
  Receive Date: 20230313
  Receipt Date: 20230410
  Transmission Date: 20230721
  Serious: Yes (Death)
  Sender: FDA-Public Use
  Company Number: JP-SERVIER-S23001853

PATIENT
  Age: 71 Year
  Sex: Male
  Weight: 48.4 kg

DRUGS (45)
  1. ONIVYDE [Suspect]
     Active Substance: IRINOTECAN HYDROCHLORIDE
     Indication: Pancreatic carcinoma
     Dosage: 70 MG/M2
     Route: 065
     Dates: start: 20210706, end: 20210706
  2. ONIVYDE [Suspect]
     Active Substance: IRINOTECAN HYDROCHLORIDE
     Dosage: 51 MG/M2
     Route: 065
     Dates: start: 20210727, end: 20210727
  3. ONIVYDE [Suspect]
     Active Substance: IRINOTECAN HYDROCHLORIDE
     Dosage: 51 MG/M2
     Route: 065
     Dates: start: 20210810, end: 20210810
  4. ONIVYDE [Suspect]
     Active Substance: IRINOTECAN HYDROCHLORIDE
     Dosage: 51 MG/M2
     Route: 065
     Dates: start: 20210824, end: 20210824
  5. ONIVYDE [Suspect]
     Active Substance: IRINOTECAN HYDROCHLORIDE
     Dosage: 51 MG/M2
     Route: 065
     Dates: start: 20210907, end: 20210907
  6. ONIVYDE [Suspect]
     Active Substance: IRINOTECAN HYDROCHLORIDE
     Dosage: 51 MG/M2
     Route: 065
     Dates: start: 20210921, end: 20210921
  7. ONIVYDE [Suspect]
     Active Substance: IRINOTECAN HYDROCHLORIDE
     Dosage: 51 MG/M2
     Route: 065
     Dates: start: 20211005, end: 20211005
  8. ONIVYDE [Suspect]
     Active Substance: IRINOTECAN HYDROCHLORIDE
     Dosage: 51 MG/M2
     Route: 065
     Dates: start: 20211019, end: 20211019
  9. ONIVYDE [Suspect]
     Active Substance: IRINOTECAN HYDROCHLORIDE
     Dosage: 51 MG/M2
     Route: 065
     Dates: start: 20211102, end: 20211102
  10. ONIVYDE [Suspect]
     Active Substance: IRINOTECAN HYDROCHLORIDE
     Dosage: 51 MG/M2
     Route: 065
     Dates: start: 20211116, end: 20211116
  11. ONIVYDE [Suspect]
     Active Substance: IRINOTECAN HYDROCHLORIDE
     Dosage: 51 MG/M2
     Route: 065
     Dates: start: 20211130, end: 20211130
  12. ONIVYDE [Suspect]
     Active Substance: IRINOTECAN HYDROCHLORIDE
     Dosage: 51 MG/M2
     Route: 065
     Dates: start: 20211214, end: 20211214
  13. ONIVYDE [Suspect]
     Active Substance: IRINOTECAN HYDROCHLORIDE
     Dosage: 51 MG/M2
     Route: 065
     Dates: start: 20211228, end: 20211228
  14. ONIVYDE [Suspect]
     Active Substance: IRINOTECAN HYDROCHLORIDE
     Dosage: 51 MG/M2
     Route: 065
     Dates: start: 20220111, end: 20220111
  15. LEVOLEUCOVORIN CALCIUM [Concomitant]
     Active Substance: LEVOLEUCOVORIN CALCIUM
     Indication: Pancreatic carcinoma
     Dosage: 200 MG/M2
     Dates: start: 20210706, end: 20210706
  16. LEVOLEUCOVORIN CALCIUM [Concomitant]
     Active Substance: LEVOLEUCOVORIN CALCIUM
     Dosage: 199 MG/M2
     Route: 065
     Dates: start: 20210727, end: 20210727
  17. LEVOLEUCOVORIN CALCIUM [Concomitant]
     Active Substance: LEVOLEUCOVORIN CALCIUM
     Dosage: 199 MG/M2
     Route: 065
     Dates: start: 20210810, end: 20210810
  18. LEVOLEUCOVORIN CALCIUM [Concomitant]
     Active Substance: LEVOLEUCOVORIN CALCIUM
     Dosage: 199 MG/M2
     Route: 065
     Dates: start: 20210824, end: 20210824
  19. LEVOLEUCOVORIN CALCIUM [Concomitant]
     Active Substance: LEVOLEUCOVORIN CALCIUM
     Dosage: 199 MG/M2
     Route: 065
     Dates: start: 20210907, end: 20210907
  20. LEVOLEUCOVORIN CALCIUM [Concomitant]
     Active Substance: LEVOLEUCOVORIN CALCIUM
     Dosage: 199 MG/M2
     Route: 065
     Dates: start: 20210921, end: 20210921
  21. LEVOLEUCOVORIN CALCIUM [Concomitant]
     Active Substance: LEVOLEUCOVORIN CALCIUM
     Dosage: 199 MG/M2
     Route: 065
     Dates: start: 20211005, end: 20211005
  22. LEVOLEUCOVORIN CALCIUM [Concomitant]
     Active Substance: LEVOLEUCOVORIN CALCIUM
     Dosage: 199 MG/M2
     Route: 065
     Dates: start: 20211019, end: 20211019
  23. LEVOLEUCOVORIN CALCIUM [Concomitant]
     Active Substance: LEVOLEUCOVORIN CALCIUM
     Dosage: 199 MG/M2
     Route: 065
     Dates: start: 20211102, end: 20211102
  24. LEVOLEUCOVORIN CALCIUM [Concomitant]
     Active Substance: LEVOLEUCOVORIN CALCIUM
     Dosage: 199 MG/M2
     Route: 065
     Dates: start: 20211116, end: 20211116
  25. LEVOLEUCOVORIN CALCIUM [Concomitant]
     Active Substance: LEVOLEUCOVORIN CALCIUM
     Dosage: 199 MG/M2
     Route: 065
     Dates: start: 20211130, end: 20211130
  26. LEVOLEUCOVORIN CALCIUM [Concomitant]
     Active Substance: LEVOLEUCOVORIN CALCIUM
     Dosage: 199 MG/M2
     Route: 065
     Dates: start: 20211214, end: 20211214
  27. LEVOLEUCOVORIN CALCIUM [Concomitant]
     Active Substance: LEVOLEUCOVORIN CALCIUM
     Dosage: 199 MG/M2
     Route: 065
     Dates: start: 20211228, end: 20211228
  28. LEVOLEUCOVORIN CALCIUM [Concomitant]
     Active Substance: LEVOLEUCOVORIN CALCIUM
     Dosage: 199 MG/M2
     Route: 065
     Dates: start: 20220111, end: 20220111
  29. FLUOROURACIL [Concomitant]
     Active Substance: FLUOROURACIL
     Indication: Pancreatic carcinoma
     Dosage: 2400 MG/M2
     Route: 065
     Dates: start: 20210706, end: 20210708
  30. FLUOROURACIL [Concomitant]
     Active Substance: FLUOROURACIL
     Dosage: 1854 MG/M2
     Route: 065
     Dates: start: 20210727, end: 20210729
  31. FLUOROURACIL [Concomitant]
     Active Substance: FLUOROURACIL
     Dosage: 1854 MG/M2
     Route: 065
     Dates: start: 20210810, end: 20210812
  32. FLUOROURACIL [Concomitant]
     Active Substance: FLUOROURACIL
     Dosage: 1854 MG/M2
     Route: 065
     Dates: start: 20210824, end: 20210826
  33. FLUOROURACIL [Concomitant]
     Active Substance: FLUOROURACIL
     Dosage: 1854 MG/M2
     Route: 065
     Dates: start: 20210907, end: 20210909
  34. FLUOROURACIL [Concomitant]
     Active Substance: FLUOROURACIL
     Dosage: 1854 MG/M2
     Route: 065
     Dates: start: 20210921, end: 20210923
  35. FLUOROURACIL [Concomitant]
     Active Substance: FLUOROURACIL
     Dosage: 1854 MG/M2
     Route: 065
     Dates: start: 20211005, end: 20211007
  36. FLUOROURACIL [Concomitant]
     Active Substance: FLUOROURACIL
     Dosage: 1854 MG/M2
     Route: 065
     Dates: start: 20211019, end: 20211021
  37. FLUOROURACIL [Concomitant]
     Active Substance: FLUOROURACIL
     Dosage: 1854 MG/M2
     Route: 065
     Dates: start: 20211102, end: 20211104
  38. FLUOROURACIL [Concomitant]
     Active Substance: FLUOROURACIL
     Dosage: 1854 MG/M2
     Route: 065
     Dates: start: 20211116, end: 20211118
  39. FLUOROURACIL [Concomitant]
     Active Substance: FLUOROURACIL
     Dosage: 1854 MG/M2
     Route: 065
     Dates: start: 20211130, end: 20211202
  40. FLUOROURACIL [Concomitant]
     Active Substance: FLUOROURACIL
     Dosage: 1854 MG/M2
     Route: 065
     Dates: start: 20211214, end: 20211216
  41. FLUOROURACIL [Concomitant]
     Active Substance: FLUOROURACIL
     Dosage: 1854 MG/M2
     Route: 065
     Dates: start: 20211228, end: 20211230
  42. FLUOROURACIL [Concomitant]
     Active Substance: FLUOROURACIL
     Dosage: 1854 MG/M2
     Route: 065
     Dates: start: 20220111, end: 20220113
  43. PALONOSETRON HYDROCHLORIDE [Concomitant]
     Active Substance: PALONOSETRON HYDROCHLORIDE
     Indication: Chemotherapy side effect prophylaxis
     Dosage: UNKNOWN
     Route: 065
  44. DEXAMETHASONE [Concomitant]
     Active Substance: DEXAMETHASONE
     Indication: Chemotherapy side effect prophylaxis
     Dosage: UNKNOWN
     Route: 065
  45. APREPITANT [Concomitant]
     Active Substance: APREPITANT
     Indication: Chemotherapy side effect prophylaxis
     Dosage: UNKNOWN
     Route: 048

REACTIONS (1)
  - Malignant neoplasm progression [Fatal]

NARRATIVE: CASE EVENT DATE: 20220113
